FAERS Safety Report 4295329-4 (Version None)
Quarter: 2004Q1

REPORT INFORMATION
  Report Type: 
  Country: None (occurrence: None)
  Receive Date: 20040216
  Receipt Date: 20030610
  Transmission Date: 20041129
  Serious: Yes (Other)
  Sender: FDA-Public Use
  Company Number: US-GLAXOSMITHKLINE-A0412046A

PATIENT
  Sex: Male

DRUGS (1)
  1. LAMICTAL [Suspect]
     Route: 048

REACTIONS (6)
  - DRUG ERUPTION [None]
  - DRY SKIN [None]
  - PRURITUS [None]
  - RASH [None]
  - RASH MACULAR [None]
  - STEVENS-JOHNSON SYNDROME [None]
